FAERS Safety Report 10695449 (Version 1)
Quarter: 2015Q1

REPORT INFORMATION
  Report Type: Spontaneous
  Country: US (occurrence: US)
  Receive Date: 20150107
  Receipt Date: 20150107
  Transmission Date: 20150721
  Serious: No
  Sender: FDA-Public Use
  Company Number: US-TEVA-532554USA

PATIENT
  Age: 25 Year
  Sex: Male

DRUGS (1)
  1. CLARAVIS [Suspect]
     Active Substance: ISOTRETINOIN
     Route: 048
     Dates: start: 20141117

REACTIONS (2)
  - Seborrhoea [Unknown]
  - Chapped lips [Unknown]

NARRATIVE: CASE EVENT DATE: 201411
